FAERS Safety Report 7694180-2 (Version None)
Quarter: 2011Q3

REPORT INFORMATION
  Report Type: 
  Country: None (occurrence: None)
  Receive Date: 20110819
  Receipt Date: 20110809
  Transmission Date: 20111222
  Serious: Yes (Hospitalization)
  Sender: FDA-Public Use
  Company Number: US-ELI_LILLY_AND_COMPANY-US201104006254

PATIENT
  Sex: Female
  Weight: 52.608 kg

DRUGS (15)
  1. PROVENTIL-HFA [Concomitant]
     Dosage: UNK, AS NEEDED
  2. PROCHLORPERAZINE [Concomitant]
     Indication: NAUSEA
     Dosage: 10 MG, AS NEEDED
  3. ALIMTA [Suspect]
     Indication: LUNG NEOPLASM MALIGNANT
     Dosage: 800 MG, EVERY 21 DAYS
     Route: 065
     Dates: start: 20101110
  4. LISINOPRIL [Concomitant]
     Dosage: 40 MG, QD
  5. FERGON [Concomitant]
     Dosage: 240 MG, BID
  6. EMEND [Concomitant]
     Indication: NAUSEA
     Dosage: 80 MG, QD
  7. DEXAMETHASONE [Concomitant]
     Dosage: 4 MG, UNKNOWN
     Route: 065
  8. FOLIC ACID [Concomitant]
     Dosage: 400 UG, QD
  9. NYSTATIN [Concomitant]
     Dosage: 4-6 ML, QID
  10. IPRATROPIUM BROMIDE [Concomitant]
     Dosage: UNK, AS NEEDED
     Route: 065
  11. ATIVAN [Concomitant]
     Indication: NAUSEA
     Dosage: 1 MG, AS NEEDED
  12. SPIRIVA [Concomitant]
     Dosage: 18 UG, QD
  13. MAGNESIUM OXIDE [Concomitant]
     Dosage: 400 MG, BID
  14. PRILOSEC [Concomitant]
     Dosage: 20 MG, QID
  15. EXCEDRIN (MIGRAINE) [Concomitant]
     Indication: HEADACHE
     Dosage: 250-250-65 MG, AS NEEDED

REACTIONS (5)
  - OTITIS MEDIA ACUTE [None]
  - TYMPANIC MEMBRANE PERFORATION [None]
  - CHRONIC OBSTRUCTIVE PULMONARY DISEASE [None]
  - NEUROPATHY PERIPHERAL [None]
  - PNEUMONIA [None]
